FAERS Safety Report 21504404 (Version 3)
Quarter: 2022Q4

REPORT INFORMATION
  Report Type: Spontaneous
  Country: GT (occurrence: GT)
  Receive Date: 20221025
  Receipt Date: 20221222
  Transmission Date: 20230112
  Serious: Yes (Other)
  Sender: FDA-Public Use
  Company Number: GT-AMGEN-GTMSP2022177325

PATIENT
  Age: 29 Year
  Sex: Female

DRUGS (3)
  1. BLINCYTO [Suspect]
     Active Substance: BLINATUMOMAB
     Indication: B precursor type acute leukaemia
     Dosage: 9 MICROGRAM/DAY 1 VIAL, QOD (EVERY 48 HOURS)
     Route: 040
     Dates: start: 20220926
  2. BLINCYTO [Suspect]
     Active Substance: BLINATUMOMAB
     Dosage: 35 MICROGRAM
     Route: 040
  3. DEXAMETHASONE [Concomitant]
     Active Substance: DEXAMETHASONE
     Dosage: 4 MILLIGRAM

REACTIONS (1)
  - Leukaemic infiltration extramedullary [Recovered/Resolved]

NARRATIVE: CASE EVENT DATE: 20221107
